FAERS Safety Report 8199596-6 (Version None)
Quarter: 2012Q1

REPORT INFORMATION
  Report Type: 
  Country: None (occurrence: None)
  Receive Date: 20120310
  Receipt Date: 20120227
  Transmission Date: 20120608
  Serious: Yes (Other)
  Sender: FDA-Public Use
  Company Number: DE-BRISTOL-MYERS SQUIBB COMPANY-16445207

PATIENT
  Age: 59 Year
  Sex: Male

DRUGS (6)
  1. ANTI-THYMOCYTE GLOBULIN NOS [Suspect]
     Indication: MYELODYSPLASTIC SYNDROME
  2. CLOFARABINE [Suspect]
     Indication: MYELODYSPLASTIC SYNDROME
  3. CYCLOPHOSPHAMIDE [Suspect]
     Indication: MYELODYSPLASTIC SYNDROME
  4. CYTARABINE [Suspect]
     Indication: MYELODYSPLASTIC SYNDROME
  5. CYCLOSPORINE [Suspect]
     Indication: MYELODYSPLASTIC SYNDROME
  6. MYCOPHENOLATE MOFETIL [Suspect]
     Indication: MYELODYSPLASTIC SYNDROME

REACTIONS (5)
  - TRANSAMINASES INCREASED [None]
  - PALMAR-PLANTAR ERYTHRODYSAESTHESIA SYNDROME [None]
  - PYREXIA [None]
  - OEDEMA [None]
  - APLASIA [None]
